FAERS Safety Report 22201526 (Version 1)
Quarter: 2023Q2

REPORT INFORMATION
  Report Type: Spontaneous
  Country: US (occurrence: None)
  Receive Date: 20230411
  Receipt Date: 20230411
  Transmission Date: 20230722
  Serious: No
  Sender: FDA-Public Use
  Company Number: None

PATIENT
  Age: 31 Year
  Sex: Female
  Weight: 83.25 kg

DRUGS (10)
  1. DEFINITY [Suspect]
     Active Substance: PERFLUTREN
     Indication: Contrast echocardiogram
     Route: 042
     Dates: start: 20230411, end: 20230411
  2. CARVEDILOL [Concomitant]
     Active Substance: CARVEDILOL
  3. LOSARTAN [Concomitant]
     Active Substance: LOSARTAN
  4. SERTRALINE [Concomitant]
     Active Substance: SERTRALINE HYDROCHLORIDE
  5. PANTOPRAZOLE SODIUM [Concomitant]
     Active Substance: PANTOPRAZOLE SODIUM
  6. oral vitamin D2 [Concomitant]
  7. injectable vitamin B12 [Concomitant]
  8. oral iron supplement [Concomitant]
  9. DEPO-PROVERA [Concomitant]
     Active Substance: MEDROXYPROGESTERONE ACETATE
  10. Tylenol as needed [Concomitant]

REACTIONS (9)
  - Cardiac procedure complication [None]
  - Dyspnoea [None]
  - Flushing [None]
  - Presyncope [None]
  - Back pain [None]
  - Chest discomfort [None]
  - Renal pain [None]
  - Chest pain [None]
  - Breath sounds abnormal [None]

NARRATIVE: CASE EVENT DATE: 20230411
